FAERS Safety Report 9059006 (Version 1)
Quarter: 2013Q1

REPORT INFORMATION
  Report Type: Spontaneous
  Country: US (occurrence: US)
  Receive Date: 20130211
  Receipt Date: 20130211
  Transmission Date: 20140127
  Serious: No
  Sender: FDA-Public Use
  Company Number: US-BRISTOL-MYERS SQUIBB COMPANY-16520629

PATIENT
  Age: 58 Year
  Sex: Male

DRUGS (5)
  1. METFORMIN HCL TABS [Suspect]
     Indication: TYPE 2 DIABETES MELLITUS
     Dosage: METFORMIN HCL TABS 1000MG
     Route: 048
  2. JANUMET [Concomitant]
  3. LISINOPRIL [Concomitant]
  4. GLIMEPIRIDE [Concomitant]
  5. PANTOPRAZOLE [Concomitant]

REACTIONS (3)
  - Blood glucose abnormal [Unknown]
  - Irritability [Unknown]
  - Abdominal discomfort [Unknown]
